FAERS Safety Report 10652358 (Version 1)
Quarter: 2014Q4

REPORT INFORMATION
  Report Type: Spontaneous
  Country: US (occurrence: US)
  Receive Date: 20141215
  Receipt Date: 20141215
  Transmission Date: 20150529
  Serious: Yes (Hospitalization, Other)
  Sender: FDA-Public Use
  Company Number: US-ASTRAZENECA-2014SE96000

PATIENT
  Sex: Female

DRUGS (1)
  1. NEXIUM [Suspect]
     Active Substance: ESOMEPRAZOLE MAGNESIUM
     Route: 048

REACTIONS (9)
  - Hypertension [Unknown]
  - Diarrhoea [Unknown]
  - Loss of consciousness [Unknown]
  - Stress [Unknown]
  - Muscle spasms [Unknown]
  - Renal disorder [Unknown]
  - Nausea [Unknown]
  - Myocardial infarction [Unknown]
  - Hypomagnesaemia [Unknown]
